FAERS Safety Report 7248695-1 (Version None)
Quarter: 2011Q1

REPORT INFORMATION
  Report Type: 
  Country: None (occurrence: None)
  Receive Date: 20110128
  Receipt Date: 20110119
  Transmission Date: 20110831
  Serious: Yes (Other)
  Sender: FDA-Public Use
  Company Number: DE-BIOGENIDEC-2011BI002610

PATIENT
  Age: 0 Day
  Sex: Female

DRUGS (1)
  1. AVONEX [Suspect]
     Indication: DRUG EXPOSURE DURING PREGNANCY
     Dosage: LESS THAN 2 MONTHS POST CONCEPTIONEM
     Route: 064
     Dates: start: 20051123, end: 20091203

REACTIONS (3)
  - CAESAREAN SECTION [None]
  - MATERNAL DRUGS AFFECTING FOETUS [None]
  - FEVER NEONATAL [None]
